FAERS Safety Report 5647395-9 (Version None)
Quarter: 2008Q1

REPORT INFORMATION
  Report Type: 
  Country: None (occurrence: None)
  Receive Date: 20080229
  Receipt Date: 20080229
  Transmission Date: 20080703
  Serious: No
  Sender: FDA-Public Use
  Company Number: None

PATIENT
  Age: 28 Year
  Sex: Female
  Weight: 46.7205 kg

DRUGS (2)
  1. ZIPRASIDONE HCL [Suspect]
     Indication: SCHIZOAFFECTIVE DISORDER
     Dosage: 80MG AM, 120MG HS BID PO
     Route: 048
     Dates: start: 20071101, end: 20080214
  2. VENLAFAXINE HCL EXTENDED-RELEASE [Suspect]
     Dosage: 225 MG QAM PO
     Route: 048
     Dates: start: 20071101, end: 20080211

REACTIONS (4)
  - ALANINE AMINOTRANSFERASE INCREASED [None]
  - ASPARTATE AMINOTRANSFERASE INCREASED [None]
  - BLOOD ALKALINE PHOSPHATASE INCREASED [None]
  - DELUSION [None]
